FAERS Safety Report 16979751 (Version 2)
Quarter: 2019Q4

REPORT INFORMATION
  Report Type: Report from Study
  Country: US (occurrence: US)
  Receive Date: 20191031
  Receipt Date: 20191122
  Transmission Date: 20200122
  Serious: Yes (Hospitalization, Other)
  Sender: FDA-Public Use
  Company Number: US-GLAXOSMITHKLINE-US2019TSO185125

PATIENT
  Sex: Female

DRUGS (1)
  1. NIRAPARIB [Suspect]
     Active Substance: NIRAPARIB
     Indication: OVARIAN CANCER
     Dosage: 200 MG, QAM WITH FOOD
     Route: 048
     Dates: start: 20191002

REACTIONS (5)
  - Cystitis [Unknown]
  - Blood pressure systolic increased [Recovering/Resolving]
  - Cataract [Unknown]
  - Constipation [Unknown]
  - Nausea [Not Recovered/Not Resolved]
